FAERS Safety Report 8331027-5 (Version None)
Quarter: 2012Q2

REPORT INFORMATION
  Report Type: 
  Country: None (occurrence: None)
  Receive Date: 20120502
  Receipt Date: 20120430
  Transmission Date: 20120825
  Serious: Yes (Other)
  Sender: FDA-Public Use
  Company Number: US-PFIZER INC-2012106606

PATIENT
  Sex: Male
  Weight: 154.65 kg

DRUGS (2)
  1. LYRICA [Suspect]
     Indication: DIABETIC NEUROPATHY
     Dosage: 75 MG FOUR TIMES A DAY
     Route: 048
     Dates: start: 20110101
  2. LYRICA [Suspect]
     Dosage: 150 MG, THREE TIMES A DAY

REACTIONS (2)
  - WEIGHT INCREASED [None]
  - BLOOD CHOLESTEROL INCREASED [None]
